FAERS Safety Report 12693897 (Version 2)
Quarter: 2016Q3

REPORT INFORMATION
  Report Type: Spontaneous
  Country: US (occurrence: US)
  Receive Date: 20160829
  Receipt Date: 20160929
  Transmission Date: 20161109
  Serious: Yes (Death)
  Sender: FDA-Public Use
  Company Number: US-PFIZER INC-2016400231

PATIENT
  Age: 60 Year
  Sex: Female

DRUGS (1)
  1. SUTENT [Suspect]
     Active Substance: SUNITINIB MALATE
     Indication: RENAL CANCER
     Dosage: 37.5 MG, CYCLIC (TAKE 1 CAPSULE BY MOUTH EVERY DAY FOR 14 DAYS THEN 7 DAYS OFF)
     Route: 048
     Dates: start: 201608

REACTIONS (2)
  - Headache [Unknown]
  - Death [Fatal]

NARRATIVE: CASE EVENT DATE: 201608
